FAERS Safety Report 14630451 (Version 1)
Quarter: 2018Q1

REPORT INFORMATION
  Report Type: Spontaneous
  Country: US (occurrence: US)
  Receive Date: 20180313
  Receipt Date: 20180313
  Transmission Date: 20180509
  Serious: Yes (Death)
  Sender: FDA-Public Use
  Company Number: None

PATIENT
  Sex: Male

DRUGS (3)
  1. CAPECITABINE. [Suspect]
     Active Substance: CAPECITABINE
  2. LUPRON [Suspect]
     Active Substance: LEUPROLIDE ACETATE
  3. TEMOZOLOMIDE. [Suspect]
     Active Substance: TEMOZOLOMIDE

REACTIONS (1)
  - Death [None]
